FAERS Safety Report 9140965 (Version 2)
Quarter: 2013Q1

REPORT INFORMATION
  Report Type: Spontaneous
  Country: GB (occurrence: GB)
  Receive Date: 20130305
  Receipt Date: 20130325
  Transmission Date: 20140127
  Serious: Yes (Death)
  Sender: FDA-Public Use
  Company Number: PHHY2013GB021137

PATIENT
  Age: 52 Year
  Sex: Male
  Weight: 79.37 kg

DRUGS (6)
  1. SIMVASTATIN [Suspect]
     Indication: BLOOD CHOLESTEROL INCREASED
     Dosage: 40 MG, QD (AT NIGHT ON IT FOR SEVERAL YEARS)
     Route: 048
     Dates: end: 20120607
  2. MIRTAZAPINE [Suspect]
     Indication: DEPRESSION
     Route: 048
     Dates: end: 20120607
  3. FLUOXETINE [Suspect]
     Indication: ANXIETY
     Dosage: 20 MG
     Route: 065
  4. LOSARTAN [Concomitant]
  5. CO-TENIDONE [Concomitant]
  6. LOSEC [Concomitant]

REACTIONS (8)
  - Completed suicide [Fatal]
  - Neck pain [Not Recovered/Not Resolved]
  - Pain in jaw [Not Recovered/Not Resolved]
  - Inflammation [Unknown]
  - Paraesthesia [Not Recovered/Not Resolved]
  - Blood creatine phosphokinase increased [Unknown]
  - Muscle spasms [Not Recovered/Not Resolved]
  - Myalgia [Not Recovered/Not Resolved]
